FAERS Safety Report 25368909 (Version 1)
Quarter: 2025Q2

REPORT INFORMATION
  Report Type: Spontaneous
  Country: US (occurrence: US)
  Receive Date: 20250528
  Receipt Date: 20250528
  Transmission Date: 20250716
  Serious: No
  Sender: MERZ
  Company Number: US-Merz Pharmaceuticals GmbH-2025040000210

PATIENT

DRUGS (2)
  1. BOTULINUM TOXIN TYPE A [Suspect]
     Active Substance: BOTULINUM TOXIN TYPE A
     Indication: Product used for unknown indication
     Dates: start: 202501, end: 202501
  2. BOTULINUM TOXIN TYPE A [Suspect]
     Active Substance: BOTULINUM TOXIN TYPE A
     Dates: start: 202501, end: 202501

REACTIONS (4)
  - Areflexia [Unknown]
  - Eyelid ptosis [Unknown]
  - Extra dose administered [Unknown]
  - Wrong dose [Unknown]

NARRATIVE: CASE EVENT DATE: 20250101
